FAERS Safety Report 7522621-X (Version None)
Quarter: 2011Q2

REPORT INFORMATION
  Report Type: 
  Country: None (occurrence: None)
  Receive Date: 20110525
  Receipt Date: 20110517
  Transmission Date: 20111010
  Serious: Yes (Other)
  Sender: FDA-Public Use
  Company Number: 1000020987

PATIENT
  Age: 43 Year
  Sex: Female

DRUGS (4)
  1. PRISTIQ [Suspect]
     Indication: GENERALISED ANXIETY DISORDER
     Dosage: 50 MG 50 MG, 1 IN 1 D), ORAL
     Route: 048
     Dates: start: 20090101, end: 20110401
  2. PRISTIQ [Suspect]
     Indication: DEPRESSION
     Dosage: 50 MG 50 MG, 1 IN 1 D), ORAL
     Route: 048
     Dates: start: 20090101, end: 20110401
  3. CELEXA [Suspect]
     Indication: GENERALISED ANXIETY DISORDER
     Dosage: 10 MG (10 MG, 1 IN 1 D), ORAL; 5 MG (5 MG, 1 IN 1 D), ORAL
     Route: 048
     Dates: start: 20010101, end: 20110514
  4. CELEXA [Suspect]
     Indication: GENERALISED ANXIETY DISORDER
     Dosage: 10 MG (10 MG, 1 IN 1 D), ORAL; 5 MG (5 MG, 1 IN 1 D), ORAL
     Route: 048
     Dates: start: 20110515

REACTIONS (4)
  - DRUG ERUPTION [None]
  - SKIN NECROSIS [None]
  - BLISTER [None]
  - PRURITUS [None]
